FAERS Safety Report 17273291 (Version 2)
Quarter: 2020Q1

REPORT INFORMATION
  Report Type: Spontaneous
  Country: CA (occurrence: CA)
  Receive Date: 20200115
  Receipt Date: 20200116
  Transmission Date: 20200409
  Serious: Yes (Life-Threatening, Hospitalization)
  Sender: FDA-Public Use
  Company Number: CA-B.I. PHARMACEUTICALS,INC./RIDGEFIELD-2020-BI-002316

PATIENT
  Age: 60 Year
  Sex: Female

DRUGS (1)
  1. JARDIANCE [Suspect]
     Active Substance: EMPAGLIFLOZIN
     Indication: DIABETES MELLITUS
     Route: 065

REACTIONS (4)
  - Eye swelling [Unknown]
  - Blood urine present [Recovering/Resolving]
  - Pain [Recovering/Resolving]
  - Haemorrhage urinary tract [Recovering/Resolving]

NARRATIVE: CASE EVENT DATE: 201912
